FAERS Safety Report 8478818-8 (Version None)
Quarter: 2012Q2

REPORT INFORMATION
  Report Type: 
  Country: None (occurrence: None)
  Receive Date: 20120629
  Receipt Date: 20120625
  Transmission Date: 20120825
  Serious: Yes (Life-Threatening, Hospitalization)
  Sender: FDA-Public Use
  Company Number: GB-JNJFOC-20120608254

PATIENT
  Sex: Male
  Weight: 75.5 kg

DRUGS (3)
  1. WARFARIN SODIUM [Concomitant]
  2. XARELTO [Suspect]
     Indication: THROMBOSIS PROPHYLAXIS
     Route: 048
  3. XARELTO [Suspect]
     Indication: HIP ARTHROPLASTY
     Route: 048

REACTIONS (2)
  - DEEP VEIN THROMBOSIS [None]
  - EMBOLISM VENOUS [None]
